FAERS Safety Report 10549951 (Version 1)
Quarter: 2014Q4

REPORT INFORMATION
  Report Type: Spontaneous
  Country: BR (occurrence: BR)
  Receive Date: 20141028
  Receipt Date: 20141028
  Transmission Date: 20150529
  Serious: Yes (Hospitalization)
  Sender: FDA-Public Use
  Company Number: BR-SA-2014SA143888

PATIENT
  Age: 83 Year
  Sex: Male
  Weight: 120 kg

DRUGS (6)
  1. CLIKSTAR [Concomitant]
     Active Substance: CLIKSTAR
  2. LANTUS [Suspect]
     Active Substance: INSULIN GLARGINE
     Indication: DIABETES MELLITUS
     Route: 058
     Dates: start: 2011
  3. JANUMET [Concomitant]
     Active Substance: METFORMIN HYDROCHLORIDE\SITAGLIPTIN PHOSPHATE
     Indication: DIABETES MELLITUS
     Route: 048
  4. BROMAZEPAM [Concomitant]
     Active Substance: BROMAZEPAM
     Indication: SLEEP DISORDER
     Route: 048
  5. ATENOLOL. [Concomitant]
     Active Substance: ATENOLOL
     Route: 048
  6. SERTRALINE HCL [Concomitant]
     Active Substance: SERTRALINE HYDROCHLORIDE
     Route: 048

REACTIONS (2)
  - Renal disorder [Recovered/Resolved]
  - Bedridden [Not Recovered/Not Resolved]

NARRATIVE: CASE EVENT DATE: 201410
